FAERS Safety Report 9379437 (Version 1)
Quarter: 2013Q3

REPORT INFORMATION
  Report Type: Spontaneous
  Country: US (occurrence: US)
  Receive Date: 20130702
  Receipt Date: 20130702
  Transmission Date: 20140515
  Serious: No
  Sender: FDA-Public Use
  Company Number: US-PFIZER INC-2013193407

PATIENT
  Age: 31 Year
  Sex: Male
  Weight: 70.3 kg

DRUGS (3)
  1. ADVIL [Suspect]
     Indication: BACK PAIN
     Dosage: UNK
  2. ADVIL [Suspect]
     Indication: BACK PAIN
     Dosage: UNK
     Dates: start: 201306
  3. TYLENOL [Suspect]
     Indication: BACK PAIN
     Dosage: UNK

REACTIONS (2)
  - Drug ineffective [Unknown]
  - Insomnia [Unknown]
